FAERS Safety Report 7470065-1 (Version None)
Quarter: 2011Q2

REPORT INFORMATION
  Report Type: 
  Country: None (occurrence: None)
  Receive Date: 20110506
  Receipt Date: 20110506
  Transmission Date: 20111010
  Serious: Yes (Life-Threatening, Hospitalization)
  Sender: FDA-Public Use
  Company Number: None

PATIENT
  Sex: Female
  Weight: 76 kg

DRUGS (2)
  1. GEMCITABINE [Suspect]
     Indication: PANCREATIC CARCINOMA
     Dosage: 100MG/M2 IV
     Route: 042
     Dates: start: 20110428
  2. ERLOTINIB HYDROCHLORIDE [Suspect]
     Indication: PANCREATIC CARCINOMA
     Dosage: 150MG PO
     Route: 048

REACTIONS (4)
  - PORTAL VEIN OCCLUSION [None]
  - ABDOMINAL PAIN [None]
  - ASCITES [None]
  - TUMOUR THROMBOSIS [None]
